FAERS Safety Report 5891652-8 (Version None)
Quarter: 2008Q3

REPORT INFORMATION
  Report Type: 
  Country: None (occurrence: None)
  Receive Date: 20080922
  Receipt Date: 20080917
  Transmission Date: 20090109
  Serious: Yes (Death, Hospitalization)
  Sender: FDA-Public Use
  Company Number: US-BRISTOL-MYERS SQUIBB COMPANY-14195663

PATIENT
  Age: 48 Year
  Sex: Female
  Weight: 69 kg

DRUGS (6)
  1. ERBITUX [Suspect]
     Indication: COLON CANCER
     Dosage: INITIAL DOSE WAS ON 15-OCT-2007. CYCLE 1 DOSE 400MG/M2 ON DAY 1 AND 250MG/M2 ON DAY 8.
     Route: 042
     Dates: start: 20080402, end: 20080402
  2. FLUOROURACIL [Suspect]
     Indication: COLON CANCER
     Dosage: INITIAL DOSE WAS ON 15-OCT-2007. INITIAL DOSE 400MG/M2 ON DAY 1 FOL BY 2400MG/M2 CIV OVER 46-48HRS.
     Route: 042
     Dates: start: 20080402, end: 20080402
  3. LEUCOVORIN CALCIUM [Suspect]
     Indication: COLON CANCER
     Dosage: INITIAL DOSE WAS ON 15-OCT-2007. 400MG/M2 OVER 120 MIN ON DAY 1.
     Route: 042
     Dates: start: 20080402, end: 20080402
  4. ELOXATIN [Suspect]
     Indication: COLON CANCER
     Dosage: INITIAL DOSE WAS ON 15-OCT-2007. CYCLE 1 + 2-12 -85MG/M2. LAST ADMIN. ON 02-APR-2008 DOSED AT 77%
     Route: 042
     Dates: start: 20080402, end: 20080402
  5. RESTORIL [Concomitant]
  6. ATIVAN [Concomitant]

REACTIONS (8)
  - DIFFUSE ALVEOLAR DAMAGE [None]
  - DYSPNOEA [None]
  - HERPES SIMPLEX [None]
  - HYPERCAPNIA [None]
  - HYPOMAGNESAEMIA [None]
  - HYPOXIA [None]
  - PNEUMONITIS [None]
  - RESPIRATORY SYNCYTIAL VIRUS INFECTION [None]
